FAERS Safety Report 7295801-9 (Version None)
Quarter: 2011Q1

REPORT INFORMATION
  Report Type: 
  Country: None (occurrence: None)
  Receive Date: 20110211
  Receipt Date: 20110211
  Transmission Date: 20110831
  Serious: Yes (Life-Threatening, Other)
  Sender: FDA-Public Use
  Company Number: None

PATIENT
  Sex: Female
  Weight: 61.2356 kg

DRUGS (8)
  1. ZOCOR [Concomitant]
  2. JANUVIA [Concomitant]
  3. VIREAD [Suspect]
     Indication: HEPATITIS B
     Dosage: 300-MG 1QD ORAL
     Route: 048
     Dates: start: 20110106
  4. LOVAZA [Concomitant]
  5. MICARDIS [Concomitant]
  6. BARACLUDE [Suspect]
     Dosage: 0.5-MG 1 QD ORAL
     Route: 048
     Dates: start: 20101110
  7. ZETIA [Concomitant]
  8. NORVASC [Concomitant]

REACTIONS (3)
  - MALAISE [None]
  - HEADACHE [None]
  - BACK PAIN [None]
